FAERS Safety Report 12500051 (Version 1)
Quarter: 2016Q2

REPORT INFORMATION
  Report Type: Spontaneous
  Country: US (occurrence: None)
  Receive Date: 20160624
  Receipt Date: 20160624
  Transmission Date: 20160815
  Serious: Yes (Hospitalization)
  Sender: FDA-Public Use
  Company Number: None

PATIENT
  Age: 57 Year
  Sex: Male
  Weight: 95.8 kg

DRUGS (2)
  1. TAXOL [Suspect]
     Active Substance: PACLITAXEL
     Dates: end: 20151203
  2. CARBOPLATIN. [Suspect]
     Active Substance: CARBOPLATIN
     Dates: end: 20151203

REACTIONS (9)
  - Dehydration [None]
  - Malaise [None]
  - Weight decreased [None]
  - Radiation oesophagitis [None]
  - Fatigue [None]
  - Asthenia [None]
  - Oesophageal ulcer [None]
  - Abdominal tenderness [None]
  - Eating disorder [None]

NARRATIVE: CASE EVENT DATE: 20160104
